FAERS Safety Report 10420940 (Version 1)
Quarter: 2014Q3

REPORT INFORMATION
  Report Type: Spontaneous
  Country: US (occurrence: None)
  Receive Date: 20140714
  Receipt Date: 20140714
  Transmission Date: 20150326
  Serious: Yes (Hospitalization)
  Sender: FDA-Public Use
  Company Number: 2014US003372

PATIENT
  Age: 73 Year
  Sex: Male

DRUGS (8)
  1. ICLUSIG [Suspect]
     Active Substance: PONATINIB
     Indication: PROSTATE CANCER
     Route: 048
     Dates: start: 2014, end: 2014
  2. TEMODAR [Concomitant]
     Active Substance: TEMOZOLOMIDE
  3. IMMODIUM ADVANCED (LOPERAMIDE HYDROCHLORIDE, SIMETICONE) [Concomitant]
  4. LOMOTIL (ATRIPINE SULFATE, DIPHENOXYLATE HYDROCHLORIDE) [Concomitant]
  5. ZOFRAN (ONDANSETRON HYDROCHLORIDE) [Concomitant]
  6. JANUMET [Concomitant]
     Active Substance: METFORMIN HYDROCHLORIDE\SITAGLIPTIN PHOSPHATE
  7. KEPPRA [Concomitant]
     Active Substance: LEVETIRACETAM
  8. ICLUSIG [Suspect]
     Active Substance: PONATINIB
     Indication: BRAIN NEOPLASM MALIGNANT
     Route: 048
     Dates: start: 2014, end: 2014

REACTIONS (2)
  - Pneumonia [None]
  - Platelet count decreased [None]

NARRATIVE: CASE EVENT DATE: 20140604
